FAERS Safety Report 22005625 (Version 4)
Quarter: 2023Q4

REPORT INFORMATION
  Report Type: Spontaneous
  Country: US (occurrence: US)
  Receive Date: 20230217
  Receipt Date: 20231120
  Transmission Date: 20240109
  Serious: Yes (Other)
  Sender: FDA-Public Use
  Company Number: US-PFIZER INC-202101340469

PATIENT
  Age: 77 Year
  Sex: Female
  Weight: 69.85 kg

DRUGS (4)
  1. IBRANCE [Suspect]
     Active Substance: PALBOCICLIB
     Indication: Bone cancer
     Dosage: 100 MG, CYCLIC (1 TABLET PO DAILY FOR 21 DAYS THEN 7 DAYS OFF/ON DAYS 1-21 OF EACH 28-DAY CYCLE)
     Route: 048
  2. IBRANCE [Suspect]
     Active Substance: PALBOCICLIB
     Indication: Lung neoplasm malignant
  3. FULVESTRANT [Suspect]
     Active Substance: FULVESTRANT
     Indication: Oestrogen therapy
     Dosage: UNK, MONTHLY
  4. LISINOPRIL [Concomitant]
     Active Substance: LISINOPRIL
     Dosage: UNK

REACTIONS (2)
  - Deafness [Unknown]
  - Mouth ulceration [Not Recovered/Not Resolved]

NARRATIVE: CASE EVENT DATE: 20230101
